FAERS Safety Report 6974467-9 (Version None)
Quarter: 2010Q3

REPORT INFORMATION
  Report Type: 
  Country: None (occurrence: None)
  Receive Date: 20100909
  Receipt Date: 20081010
  Transmission Date: 20110219
  Serious: No
  Sender: FDA-Public Use
  Company Number: US-WYE-H05663808

PATIENT
  Age: 58 Year
  Sex: Female

DRUGS (6)
  1. PANTOPRAZOLE [Suspect]
     Indication: GASTROOESOPHAGEAL REFLUX DISEASE
     Route: 048
     Dates: start: 20080816, end: 20080101
  2. PANTOPRAZOLE [Suspect]
     Dosage: UNKNOWN
     Dates: start: 20080101
  3. ATENOLOL [Concomitant]
  4. NAPROSYN [Concomitant]
  5. SYNTHROID [Concomitant]
  6. OLMESARTAN MEDOXOMIL AND HYDROCHLOROTHIZIDE [Concomitant]

REACTIONS (2)
  - CONDITION AGGRAVATED [None]
  - GASTROOESOPHAGEAL REFLUX DISEASE [None]
